FAERS Safety Report 6074686-2 (Version None)
Quarter: 2009Q1

REPORT INFORMATION
  Report Type: 
  Country: None (occurrence: None)
  Receive Date: 20090212
  Receipt Date: 20090205
  Transmission Date: 20090719
  Serious: Yes (Other)
  Sender: FDA-Public Use
  Company Number: ES-BAYER-200913108GPV

PATIENT
  Age: 53 Year
  Sex: Female
  Weight: 90 kg

DRUGS (5)
  1. BETAFERON [Suspect]
     Indication: MULTIPLE SCLEROSIS
     Dates: start: 20080324
  2. DACORTIN [Concomitant]
     Indication: URTICARIA
     Route: 048
     Dates: start: 20040101
  3. METFORMIN HCL [Concomitant]
     Indication: DRUG USE FOR UNKNOWN INDICATION
  4. ATARAX (HYDROXYZINE DIHYDROCHLORIDE) [Concomitant]
     Indication: URTICARIA
     Route: 048
  5. EBASTEL FORTE (EBASTINE) [Concomitant]
     Indication: URTICARIA
     Route: 048

REACTIONS (1)
  - LEUKOCYTOCLASTIC VASCULITIS [None]
